FAERS Safety Report 7361574-4 (Version None)
Quarter: 2011Q1

REPORT INFORMATION
  Report Type: 
  Country: None (occurrence: None)
  Receive Date: 20110315
  Receipt Date: 20110315
  Transmission Date: 20110831
  Serious: No
  Sender: FDA-Public Use
  Company Number: None

PATIENT
  Age: 54 Year
  Sex: Female
  Weight: 56.6996 kg

DRUGS (1)
  1. EFFEXOR XR [Suspect]
     Indication: DEPRESSION
     Dosage: 150 MG. TWICE PER DAY PO
     Route: 048
     Dates: start: 20020101, end: 20110313

REACTIONS (14)
  - INJURY [None]
  - THINKING ABNORMAL [None]
  - CRYING [None]
  - VERTIGO [None]
  - DRUG DEPENDENCE [None]
  - VOMITING [None]
  - TINNITUS [None]
  - SLUGGISHNESS [None]
  - NAUSEA [None]
  - DIZZINESS [None]
  - FEELING ABNORMAL [None]
  - VISION BLURRED [None]
  - ABNORMAL DREAMS [None]
  - PERIORBITAL HAEMATOMA [None]
